FAERS Safety Report 18545002 (Version 3)
Quarter: 2025Q2

REPORT INFORMATION
  Report Type: Spontaneous
  Country: IT (occurrence: IT)
  Receive Date: 20201125
  Receipt Date: 20250411
  Transmission Date: 20250717
  Serious: Yes (Life-Threatening, Hospitalization, Other)
  Sender: RANBAXY
  Company Number: IT-SUN PHARMACEUTICAL INDUSTRIES LTD-2020R1-266894

PATIENT
  Age: 60 Year
  Sex: Female

DRUGS (18)
  1. FENTANYL [Suspect]
     Active Substance: FENTANYL
     Indication: Product used for unknown indication
     Route: 065
  2. TICAGRELOR [Suspect]
     Active Substance: TICAGRELOR
     Indication: Product used for unknown indication
     Route: 065
  3. MORPHINE [Interacting]
     Active Substance: MORPHINE
     Indication: Antiplatelet therapy
     Route: 042
  4. WARFARIN [Suspect]
     Active Substance: WARFARIN
     Indication: Antiplatelet therapy
     Route: 040
  5. WARFARIN [Suspect]
     Active Substance: WARFARIN
     Route: 040
  6. CANGRELOR TETRASODIUM [Suspect]
     Active Substance: CANGRELOR TETRASODIUM
     Indication: Antiplatelet therapy
     Route: 040
  7. CANGRELOR TETRASODIUM [Suspect]
     Active Substance: CANGRELOR TETRASODIUM
     Route: 040
  8. TIROFIBAN [Suspect]
     Active Substance: TIROFIBAN
     Indication: Antiplatelet therapy
     Route: 040
  9. TIROFIBAN [Suspect]
     Active Substance: TIROFIBAN
     Route: 040
  10. ASPIRIN [Suspect]
     Active Substance: ASPIRIN
     Indication: Antiplatelet therapy
     Route: 042
  11. ASPIRIN [Suspect]
     Active Substance: ASPIRIN
     Dosage: 100 MILLIGRAM, QD
     Route: 048
  12. EVEROLIMUS [Suspect]
     Active Substance: EVEROLIMUS
     Indication: Acute myocardial infarction
     Route: 065
  13. EVEROLIMUS [Suspect]
     Active Substance: EVEROLIMUS
     Indication: Acute myocardial infarction
  14. HEPARIN [Suspect]
     Active Substance: HEPARIN SODIUM
     Indication: Product used for unknown indication
     Route: 065
  15. ATORVASTATIN [Concomitant]
     Active Substance: ATORVASTATIN
     Indication: Product used for unknown indication
     Dosage: 80 MILLIGRAM, QD
     Route: 065
  16. RAMIPRIL [Concomitant]
     Active Substance: RAMIPRIL
     Indication: Product used for unknown indication
     Route: 065
  17. BISOPROLOL [Concomitant]
     Active Substance: BISOPROLOL
     Indication: Product used for unknown indication
     Route: 065
  18. BISOPROLOL [Concomitant]
     Active Substance: BISOPROLOL
     Route: 065

REACTIONS (17)
  - Malabsorption [Recovering/Resolving]
  - Vascular stent thrombosis [Recovering/Resolving]
  - Hypersensitivity [Unknown]
  - Drug level decreased [Unknown]
  - Hypotension [Unknown]
  - Off label use [Unknown]
  - Product use in unapproved indication [Unknown]
  - Drug interaction [Unknown]
  - Rectal haemorrhage [Unknown]
  - Nausea [Unknown]
  - Colitis ischaemic [Unknown]
  - Acute myocardial infarction [Unknown]
  - Erythema [Unknown]
  - Electrocardiogram ST segment elevation [Unknown]
  - Eosinophilia [Unknown]
  - Thrombocytopenia [Unknown]
  - Eosinophil cationic protein increased [Unknown]
